FAERS Safety Report 5748172-0 (Version None)
Quarter: 2008Q2

REPORT INFORMATION
  Report Type: 
  Country: None (occurrence: None)
  Receive Date: 20080523
  Receipt Date: 20071206
  Transmission Date: 20081010
  Serious: No
  Sender: FDA-Public Use
  Company Number: US-BOEHRINGER INGELHEIM GMBH, GERMANY-2007-BP-11492BP

PATIENT
  Sex: Female
  Weight: 91 kg

DRUGS (19)
  1. MIRAPEX [Suspect]
     Indication: RESTLESS LEGS SYNDROME
     Dates: start: 20000701, end: 20050901
  2. BUPROPION HCL [Concomitant]
     Dates: start: 20040701
  3. PAXIL [Concomitant]
  4. LEXAPRO [Concomitant]
     Dates: start: 20040201
  5. APAP W/ CODEINE [Concomitant]
     Dates: start: 20020401
  6. ACETAMINOPHEN AND HYDROCODONE BITARTRATE [Concomitant]
     Dates: start: 20010201
  7. CIPRO [Concomitant]
  8. GUAIFENEX [Concomitant]
  9. PSE 120 [Concomitant]
  10. DIFLUCAN [Concomitant]
  11. WELLBUTRIN [Concomitant]
  12. RESTORIL [Concomitant]
  13. VALTREX [Concomitant]
     Dates: start: 20020401
  14. CARISOPRODOL [Concomitant]
     Dates: start: 20020801
  15. POLYSACCHARID [Concomitant]
     Dates: start: 20021201
  16. CYCLOBENZAPRINE HCL [Concomitant]
     Dates: start: 20030501
  17. IBUPROFEN [Concomitant]
  18. PENICILLIN VK [Concomitant]
     Dates: start: 20020301
  19. ALDARA [Concomitant]
     Dates: start: 20050501

REACTIONS (6)
  - ANXIETY [None]
  - DEPRESSION [None]
  - EMOTIONAL DISTRESS [None]
  - PAIN [None]
  - PATHOLOGICAL GAMBLING [None]
  - STRESS [None]
